FAERS Safety Report 8318175-0 (Version None)
Quarter: 2012Q2

REPORT INFORMATION
  Report Type: 
  Country: None (occurrence: None)
  Receive Date: 20120427
  Receipt Date: 20120416
  Transmission Date: 20120825
  Serious: Yes (Death, Other)
  Sender: FDA-Public Use
  Company Number: PL-ROCHE-1060255

PATIENT
  Age: 48 Year
  Sex: Male

DRUGS (10)
  1. DEXA - BEAM REGIMEN [Concomitant]
  2. RITUXIMAB [Suspect]
     Indication: MANTLE CELL LYMPHOMA
  3. DOXORUBICIN HCL [Concomitant]
  4. VINCRISTINE [Concomitant]
  5. PREDNISONE [Concomitant]
  6. LENALIDOMIDE [Concomitant]
     Dosage: SECOND LINE TREATMENT
     Dates: start: 20110101
  7. CYCLOPHOSPHAMIDE [Concomitant]
  8. FLUDARABINE PHOSPHATE [Concomitant]
     Dosage: FIRST LINE TREATMENT
  9. CYTARABINE [Concomitant]
     Dosage: FOURHTH LINE TREATMENT.
     Dates: start: 20111201, end: 20120101
  10. DHAP [Concomitant]
     Dosage: FIFTH LINE TREATMENT.
     Dates: start: 20120201

REACTIONS (11)
  - CLOSTRIDIAL INFECTION [None]
  - GASTRIC DISORDER [None]
  - PNEUMONIA [None]
  - MANTLE CELL LYMPHOMA [None]
  - NEOPLASM RECURRENCE [None]
  - SEPTIC SHOCK [None]
  - FEBRILE NEUTROPENIA [None]
  - DIARRHOEA [None]
  - DEATH [None]
  - DISEASE PROGRESSION [None]
  - WEIGHT DECREASED [None]
